FAERS Safety Report 4405125-2 (Version None)
Quarter: 2004Q3

REPORT INFORMATION
  Report Type: 
  Country: None (occurrence: None)
  Receive Date: 20040719
  Receipt Date: 20040701
  Transmission Date: 20050211
  Serious: Yes (Hospitalization)
  Sender: FDA-Public Use
  Company Number: 197140

PATIENT
  Age: 42 Year
  Sex: Female
  Weight: 54.4316 kg

DRUGS (6)
  1. AVONEX [Suspect]
     Indication: MULTIPLE SCLEROSIS
     Dosage: 30 MCG QW IM
     Route: 030
     Dates: start: 20011001, end: 20030101
  2. AVONEX [Suspect]
     Indication: MULTIPLE SCLEROSIS
     Dosage: 30 MCG QW IM
     Route: 030
     Dates: start: 20030101, end: 20040405
  3. AVONEX [Suspect]
     Indication: MULTIPLE SCLEROSIS
     Dosage: 15 MCG QW IM
     Route: 030
     Dates: start: 20040412
  4. KLONOPIN [Concomitant]
  5. AMBIEN [Concomitant]
  6. CELEXA [Concomitant]

REACTIONS (8)
  - CONDITION AGGRAVATED [None]
  - CROHN'S DISEASE [None]
  - FATIGUE [None]
  - GLOSSODYNIA [None]
  - INFLUENZA LIKE ILLNESS [None]
  - IRRITABLE BOWEL SYNDROME [None]
  - NEUROLOGICAL SYMPTOM [None]
  - PSYCHIATRIC SYMPTOM [None]
